FAERS Safety Report 9272838 (Version 1)
Quarter: 2013Q2

REPORT INFORMATION
  Report Type: Spontaneous
  Country: US (occurrence: US)
  Receive Date: 20130506
  Receipt Date: 20130506
  Transmission Date: 20140414
  Serious: No
  Sender: FDA-Public Use
  Company Number: US-ASTRAZENECA-2012SE27177

PATIENT
  Age: 42 Year
  Sex: Female

DRUGS (6)
  1. PRILOSEC OTC [Suspect]
     Indication: GASTROOESOPHAGEAL REFLUX DISEASE
     Route: 048
  2. VITAMIN B [Concomitant]
  3. VITAMIN C [Concomitant]
     Dosage: UNKNOWN
  4. VITAMIN D [Concomitant]
     Dosage: UNKNOWN
  5. VITAMIN E [Concomitant]
     Dosage: UNKNOWN
  6. ZINC [Concomitant]
     Dosage: UNKNOWN

REACTIONS (3)
  - Vitamin D decreased [Not Recovered/Not Resolved]
  - Gastrooesophageal reflux disease [Not Recovered/Not Resolved]
  - Condition aggravated [Not Recovered/Not Resolved]
